FAERS Safety Report 20964698 (Version 1)
Quarter: 2022Q2

REPORT INFORMATION
  Report Type: Report from Study
  Country: CA (occurrence: CA)
  Receive Date: 20220615
  Receipt Date: 20220615
  Transmission Date: 20220721
  Serious: Yes (Other)
  Sender: FDA-Public Use
  Company Number: CA-CELLTRION INC.-2022CA007925

PATIENT

DRUGS (3)
  1. TRUXIMA [Suspect]
     Active Substance: RITUXIMAB-ABBS
     Indication: Vasculitis
     Dosage: 1000 MG (DAY 1 OF ONLY DAY 1 INFUSION (RETREATMENT))
     Route: 042
     Dates: start: 20211210
  2. TRUXIMA [Suspect]
     Active Substance: RITUXIMAB-ABBS
     Dosage: 1000 MG, INFUSION #2
     Route: 042
     Dates: start: 20211210
  3. SODIUM CHLORIDE [Concomitant]
     Active Substance: SODIUM CHLORIDE
     Dosage: NS 0.9% 100 ML

REACTIONS (7)
  - COVID-19 [Unknown]
  - Surgery [Unknown]
  - Biopsy skin [Unknown]
  - Erythema [Recovering/Resolving]
  - Skin exfoliation [Recovering/Resolving]
  - Cognitive disorder [Not Recovered/Not Resolved]
  - Intentional dose omission [Unknown]
